FAERS Safety Report 8021277-X (Version None)
Quarter: 2012Q1

REPORT INFORMATION
  Report Type: 
  Country: None (occurrence: None)
  Receive Date: 20120104
  Receipt Date: 20111222
  Transmission Date: 20120608
  Serious: Yes (Hospitalization)
  Sender: FDA-Public Use
  Company Number: US-BAYER-2011-041227

PATIENT
  Age: 35 Year
  Sex: Female
  Weight: 47.166 kg

DRUGS (1)
  1. YAZ [Suspect]
     Dosage: UNK
     Dates: start: 20090101

REACTIONS (4)
  - CEREBRAL THROMBOSIS [None]
  - COGNITIVE DISORDER [None]
  - PAIN [None]
  - FEAR [None]
